FAERS Safety Report 10144211 (Version 1)
Quarter: 2014Q2

REPORT INFORMATION
  Report Type: Spontaneous
  Country: TH (occurrence: TH)
  Receive Date: 20140430
  Receipt Date: 20140430
  Transmission Date: 20141212
  Serious: Yes (Other)
  Sender: FDA-Public Use
  Company Number: PHHY2014TH049829

PATIENT
  Sex: Female

DRUGS (2)
  1. INDOMETHACIN [Suspect]
     Route: 064
  2. NIFEDIPINE [Concomitant]

REACTIONS (11)
  - Hydrops foetalis [Recovering/Resolving]
  - Ascites [Recovering/Resolving]
  - Pleural effusion [Recovering/Resolving]
  - Pericardial effusion [Recovering/Resolving]
  - Oedema [Recovering/Resolving]
  - Increased ventricular preload [Recovering/Resolving]
  - Right ventricular dysfunction [Recovering/Resolving]
  - Cardiac failure [Recovering/Resolving]
  - Premature baby [Unknown]
  - Low birth weight baby [Unknown]
  - Foetal exposure during pregnancy [Unknown]
